FAERS Safety Report 4345170-9 (Version None)
Quarter: 2004Q2

REPORT INFORMATION
  Report Type: 
  Country: None (occurrence: None)
  Receive Date: 20040422
  Receipt Date: 20040422
  Transmission Date: 20050107
  Serious: No
  Sender: FDA-Public Use
  Company Number: None

PATIENT
  Age: 38 Year
  Sex: Female

DRUGS (3)
  1. ALEVE [Suspect]
     Indication: PAIN
     Dosage: 200 MG X 1 PO
     Route: 048
     Dates: start: 20031205
  2. SEROQUEL [Concomitant]
  3. NEURONTIN [Concomitant]

REACTIONS (1)
  - DYSPHAGIA [None]
